FAERS Safety Report 7359474-9 (Version None)
Quarter: 2011Q1

REPORT INFORMATION
  Report Type: 
  Country: None (occurrence: None)
  Receive Date: 20110317
  Receipt Date: 20110307
  Transmission Date: 20110831
  Serious: Yes (Hospitalization, Disabling, Other)
  Sender: FDA-Public Use
  Company Number: IT-ACTELION-A-CH2006-12757

PATIENT
  Sex: Female
  Weight: 41 kg

DRUGS (2)
  1. ZAVESCA [Suspect]
     Dosage: 33 MG, TID
     Route: 048
     Dates: start: 20050622, end: 20051019
  2. ZAVESCA [Suspect]
     Indication: NIEMANN-PICK DISEASE
     Dosage: 100 MG, TID
     Route: 048
     Dates: start: 20051020

REACTIONS (5)
  - GASTROSTOMY TUBE INSERTION [None]
  - CONVULSION [None]
  - EPILEPSY [None]
  - TREMOR [None]
  - DYSPHAGIA [None]
